FAERS Safety Report 19820457 (Version 1)
Quarter: 2021Q3

REPORT INFORMATION
  Report Type: Spontaneous
  Country: US (occurrence: US)
  Receive Date: 20210913
  Receipt Date: 20210913
  Transmission Date: 20211014
  Serious: Yes (Hospitalization, Other)
  Sender: FDA-Public Use
  Company Number: US-CADILA HEALTHCARE LIMITED-US-ZYDUS-069419

PATIENT

DRUGS (2)
  1. WARFARIN [Concomitant]
     Active Substance: WARFARIN
     Indication: PRODUCT USE IN UNAPPROVED INDICATION
     Dosage: UNK
     Route: 065
  2. BOSENTAN 125 MG TABLETS [Suspect]
     Active Substance: BOSENTAN
     Indication: PRODUCT USED FOR UNKNOWN INDICATION
     Dosage: 125 MILLIGRAM, BID
     Route: 048
     Dates: start: 20190619

REACTIONS (6)
  - Asthenia [Unknown]
  - Atrial fibrillation [Unknown]
  - Hypoxia [Recovered/Resolved]
  - Tachycardia [Unknown]
  - Pneumonia [Unknown]
  - Cystitis [Unknown]

NARRATIVE: CASE EVENT DATE: 2021
